FAERS Safety Report 9165362 (Version 1)
Quarter: 2013Q1

REPORT INFORMATION
  Report Type: Spontaneous
  Country: US (occurrence: US)
  Receive Date: 20130315
  Receipt Date: 20130315
  Transmission Date: 20140127
  Serious: Yes (Other)
  Sender: FDA-Public Use
  Company Number: US-ELI_LILLY_AND_COMPANY-US201303001029

PATIENT
  Sex: 0

DRUGS (1)
  1. HUMATROPE [Suspect]

REACTIONS (4)
  - Glaucoma [Unknown]
  - Eye disorder [Unknown]
  - Fatigue [Unknown]
  - Oropharyngeal pain [Unknown]
